FAERS Safety Report 17071828 (Version 1)
Quarter: 2019Q4

REPORT INFORMATION
  Report Type: Spontaneous
  Country: US (occurrence: US)
  Receive Date: 20191026
  Receipt Date: 20191026
  Transmission Date: 20200122
  Serious: No
  Sender: FDA-Public Use
  Company Number: None

PATIENT
  Age: 79 Year
  Sex: Female

DRUGS (1)
  1. NUCALA [Suspect]
     Active Substance: MEPOLIZUMAB
     Route: 048
     Dates: start: 201711

REACTIONS (2)
  - Dyspnoea [None]
  - Rhinorrhoea [None]

NARRATIVE: CASE EVENT DATE: 20191026
